FAERS Safety Report 17954517 (Version 2)
Quarter: 2020Q2

REPORT INFORMATION
  Report Type: Spontaneous
  Country: US (occurrence: US)
  Receive Date: 20200629
  Receipt Date: 20200629
  Transmission Date: 20200714
  Serious: Yes (Life-Threatening, Hospitalization, Other)
  Sender: FDA-Public Use
  Company Number: US-CIPLA LTD.-2020US04378

PATIENT

DRUGS (1)
  1. TESTOSTERONE. [Suspect]
     Active Substance: TESTOSTERONE
     Indication: PRODUCT USED FOR UNKNOWN INDICATION
     Dosage: UNK
     Route: 065

REACTIONS (11)
  - Aortic valve incompetence [Recovered/Resolved]
  - Spinal cord abscess [Recovered/Resolved]
  - Product administration error [Unknown]
  - Sepsis [Recovered/Resolved]
  - Aortic aneurysm [Recovered/Resolved]
  - Mitral valve incompetence [Recovered/Resolved]
  - Intervertebral discitis [Recovered/Resolved]
  - Streptococcal infection [Recovered/Resolved]
  - Spinal cord compression [Recovered/Resolved]
  - Cardiac valve vegetation [Recovered/Resolved]
  - Endocarditis [Recovered/Resolved]
